FAERS Safety Report 10013689 (Version 1)
Quarter: 2014Q1

REPORT INFORMATION
  Report Type: Spontaneous
  Country: BR (occurrence: BR)
  Receive Date: 20140315
  Receipt Date: 20140315
  Transmission Date: 20141002
  Serious: Yes (Life-Threatening, Hospitalization)
  Sender: FDA-Public Use
  Company Number: BR-ASTRAZENECA-2014SE17144

PATIENT
  Age: 454 Month
  Sex: Female
  Weight: 77 kg

DRUGS (11)
  1. SELOZOK [Suspect]
     Indication: ANGINA PECTORIS
     Route: 048
     Dates: start: 2002, end: 201301
  2. SELOZOK [Suspect]
     Indication: CARDIAC FAILURE
     Route: 048
     Dates: start: 2002, end: 201301
  3. SELOZOK [Suspect]
     Indication: ANGINA PECTORIS
     Route: 048
     Dates: start: 201301, end: 201311
  4. SELOZOK [Suspect]
     Indication: CARDIAC FAILURE
     Route: 048
     Dates: start: 201301, end: 201311
  5. SELOZOK [Suspect]
     Indication: ANGINA PECTORIS
     Route: 048
     Dates: start: 201311, end: 201312
  6. SELOZOK [Suspect]
     Indication: CARDIAC FAILURE
     Route: 048
     Dates: start: 201311, end: 201312
  7. SELOZOK [Suspect]
     Indication: ANGINA PECTORIS
     Route: 048
     Dates: start: 201312
  8. SELOZOK [Suspect]
     Indication: CARDIAC FAILURE
     Route: 048
     Dates: start: 201312
  9. LOSARTAN [Concomitant]
     Route: 048
  10. HYDROCHLOROTHIAZIDE [Concomitant]
     Route: 048
  11. OTHER DRUGS [Concomitant]

REACTIONS (6)
  - Cardiac arrest [Recovered/Resolved]
  - Arrhythmia [Recovered/Resolved]
  - Fatigue [Recovered/Resolved]
  - Chest pain [Recovered/Resolved]
  - Drug dose omission [Recovered/Resolved]
  - Off label use [Not Recovered/Not Resolved]
